FAERS Safety Report 6539673-6 (Version None)
Quarter: 2010Q1

REPORT INFORMATION
  Report Type: 
  Country: None (occurrence: None)
  Receive Date: 20100111
  Receipt Date: 20100106
  Transmission Date: 20100710
  Serious: Yes (Life-Threatening)
  Sender: FDA-Public Use
  Company Number: ACO_00631_2010

PATIENT
  Sex: Male

DRUGS (8)
  1. ZANAFLEX [Suspect]
     Indication: DRUG USE FOR UNKNOWN INDICATION
     Dosage: (DF)
  2. CELEXA [Concomitant]
  3. PRILOSEC [Concomitant]
  4. CRESTOR [Concomitant]
  5. HYDROCODONE [Concomitant]
  6. ATIVAN [Concomitant]
  7. PLAVIX [Concomitant]
  8. LOVAZA [Concomitant]

REACTIONS (1)
  - LUNG NEOPLASM MALIGNANT [None]
